FAERS Safety Report 6678664-1 (Version None)
Quarter: 2010Q2

REPORT INFORMATION
  Report Type: 
  Country: None (occurrence: None)
  Receive Date: 20100413
  Receipt Date: 20100401
  Transmission Date: 20101027
  Serious: Yes (Hospitalization)
  Sender: FDA-Public Use
  Company Number: JP-PFIZER INC-2010033347

PATIENT
  Age: 60 Year
  Sex: Female
  Weight: 44 kg

DRUGS (4)
  1. SUNITINIB MALATE [Suspect]
     Indication: RENAL CELL CARCINOMA
     Dosage: 25 MG, ALTERNATE DAY
     Route: 048
     Dates: start: 20090901
  2. LENDORMIN [Concomitant]
     Dosage: UNK
     Route: 048
  3. ADALAT [Concomitant]
     Dosage: UNK
     Route: 048
  4. LOXONIN [Concomitant]
     Dosage: UNK
     Route: 048

REACTIONS (1)
  - CEREBRAL HAEMORRHAGE [None]
